FAERS Safety Report 5320233-X (Version None)
Quarter: 2007Q2

REPORT INFORMATION
  Report Type: 
  Country: None (occurrence: None)
  Receive Date: 20070509
  Receipt Date: 20070503
  Transmission Date: 20071010
  Serious: Yes (Hospitalization)
  Sender: FDA-Public Use
  Company Number: B0469242A

PATIENT
  Age: 55 Year
  Sex: Female

DRUGS (1)
  1. AUGMENTIN '125' [Suspect]
     Route: 048
     Dates: start: 20061102, end: 20061105

REACTIONS (6)
  - ABDOMINAL PAIN [None]
  - CLOSTRIDIUM DIFFICILE COLITIS [None]
  - COLITIS [None]
  - NAUSEA [None]
  - SUBILEUS [None]
  - VOMITING [None]
